FAERS Safety Report 16937141 (Version 3)
Quarter: 2019Q4

REPORT INFORMATION
  Report Type: Spontaneous
  Country: JP (occurrence: JP)
  Receive Date: 20191018
  Receipt Date: 20191213
  Transmission Date: 20200122
  Serious: Yes (Death, Life-Threatening, Other)
  Sender: FDA-Public Use
  Company Number: JP-ABBVIE-19P-087-2969363-00

PATIENT
  Age: 90 Year
  Sex: Male

DRUGS (8)
  1. EVIPROSTAT N [Concomitant]
     Active Substance: HERBALS
     Indication: DYSURIA
     Route: 048
     Dates: start: 20130930, end: 20190912
  2. ODYNE [Concomitant]
     Active Substance: FLUTAMIDE
     Indication: PROSTATE CANCER
     Route: 065
     Dates: start: 2004
  3. URIEF [Concomitant]
     Active Substance: SILODOSIN
     Indication: DYSURIA
     Route: 048
     Dates: start: 20130930, end: 20190916
  4. LEUPLIN SR [Suspect]
     Active Substance: LEUPROLIDE ACETATE
     Indication: PROSTATE CANCER
     Route: 058
     Dates: start: 2004
  5. LEUPLIN SR [Suspect]
     Active Substance: LEUPROLIDE ACETATE
     Route: 058
     Dates: start: 20140414, end: 20190829
  6. APALUTAMIDE [Suspect]
     Active Substance: APALUTAMIDE
     Indication: HORMONE-REFRACTORY PROSTATE CANCER
     Route: 048
     Dates: start: 20190829, end: 20190916
  7. CASODEX [Concomitant]
     Active Substance: BICALUTAMIDE
     Indication: PROSTATE CANCER
     Route: 048
     Dates: start: 20140414, end: 20190829
  8. KEISHIBUKURYOGAN [Concomitant]
     Active Substance: HERBALS
     Indication: HOT FLUSH
     Route: 048
     Dates: start: 20190827, end: 20190912

REACTIONS (4)
  - Decreased appetite [Unknown]
  - Hormone-refractory prostate cancer [Fatal]
  - Malaise [Unknown]
  - Cardiac failure acute [Fatal]

NARRATIVE: CASE EVENT DATE: 20190801
